FAERS Safety Report 6885546-9 (Version None)
Quarter: 2010Q3

REPORT INFORMATION
  Report Type: 
  Country: None (occurrence: None)
  Receive Date: 20100729
  Receipt Date: 20080616
  Transmission Date: 20110219
  Serious: Yes (Hospitalization, Disabling, Other)
  Sender: FDA-Public Use
  Company Number: US-PFIZER INC-2008034040

PATIENT
  Sex: Male

DRUGS (2)
  1. CELEBREX [Suspect]
     Indication: ARTHRITIS
     Dates: start: 19990223, end: 20020114
  2. CELEBREX [Suspect]

REACTIONS (2)
  - LIBIDO DECREASED [None]
  - MYOCARDIAL INFARCTION [None]
